FAERS Safety Report 15957879 (Version 2)
Quarter: 2019Q1

REPORT INFORMATION
  Report Type: Spontaneous
  Country: FR (occurrence: FR)
  Receive Date: 20190213
  Receipt Date: 20190226
  Transmission Date: 20190417
  Serious: Yes (Life-Threatening, Hospitalization, Other)
  Sender: FDA-Public Use
  Company Number: FR-PFIZER INC-2017024711

PATIENT
  Age: 77 Year
  Sex: Male

DRUGS (7)
  1. NEODEX [DEXAMETHASONE] [Suspect]
     Active Substance: DEXAMETHASONE
     Indication: PLASMA CELL MYELOMA
     Dosage: 40 MG, CYCLIC (1DF, 1CYCLE)
     Route: 048
     Dates: start: 20150729, end: 20150810
  2. CEFAZOLINE [CEFAZOLIN] [Concomitant]
     Indication: CHALAZION
     Dosage: UNK
     Dates: start: 201605
  3. CORDARONE [Suspect]
     Active Substance: AMIODARONE HYDROCHLORIDE
     Dosage: UNK
     Route: 065
     Dates: start: 20150928, end: 20151005
  4. ALLOPURINOL. [Suspect]
     Active Substance: ALLOPURINOL
     Dosage: 1 DF, UNK
     Route: 048
     Dates: start: 20150729, end: 20150810
  5. REVLIMID [Suspect]
     Active Substance: LENALIDOMIDE
     Indication: PLASMA CELL MYELOMA
     Dosage: UNK
     Route: 048
     Dates: start: 20150729, end: 20150810
  6. VELCADE [Concomitant]
     Active Substance: BORTEZOMIB
     Indication: PLASMA CELL MYELOMA
     Dosage: UNK
     Dates: start: 20150828
  7. NEODEX [DEXAMETHASONE] [Suspect]
     Active Substance: DEXAMETHASONE
     Dosage: 1 DF, UNK
     Route: 065
     Dates: start: 20150828

REACTIONS (3)
  - Toxic epidermal necrolysis [Recovered/Resolved]
  - Atrial fibrillation [Recovering/Resolving]
  - Toxic skin eruption [Recovered/Resolved]

NARRATIVE: CASE EVENT DATE: 20150810
